FAERS Safety Report 10874681 (Version 2)
Quarter: 2015Q3

REPORT INFORMATION
  Report Type: Spontaneous
  Country: DE (occurrence: DE)
  Receive Date: 20150227
  Receipt Date: 20150827
  Transmission Date: 20151125
  Serious: Yes (Other)
  Sender: FDA-Public Use
  Company Number: PHHY2015DE014940

PATIENT
  Age: 77 Year
  Sex: Male
  Weight: 51 kg

DRUGS (4)
  1. PREDNISOLON [Concomitant]
     Active Substance: PREDNISOLONE
     Indication: PROSTATE CANCER METASTATIC
     Dosage: 8 MG
     Route: 048
     Dates: start: 20150507, end: 20150528
  2. ZOLEDRONATE [Suspect]
     Active Substance: ZOLEDRONIC ACID
     Indication: PROSTATE CANCER METASTATIC
     Dosage: 4 MG PER 100 ML, ONCE PER MONTH
     Route: 042
     Dates: start: 20140310, end: 20150601
  3. CALCIMAGON [Concomitant]
     Active Substance: CALCIUM
     Indication: PROSTATE CANCER METASTATIC
     Dosage: 2000 MG
     Route: 048
     Dates: start: 20140310
  4. XTANDI [Concomitant]
     Active Substance: ENZALUTAMIDE
     Indication: PROSTATE CANCER METASTATIC
     Dosage: 40 MG
     Route: 048
     Dates: start: 20150218

REACTIONS (1)
  - Osteitis [Not Recovered/Not Resolved]

NARRATIVE: CASE EVENT DATE: 20141007
